FAERS Safety Report 5220592-2 (Version None)
Quarter: 2007Q1

REPORT INFORMATION
  Report Type: 
  Country: None (occurrence: None)
  Receive Date: 20070125
  Receipt Date: 20070125
  Transmission Date: 20070707
  Serious: Yes (Hospitalization)
  Sender: FDA-Public Use
  Company Number: None

PATIENT
  Sex: Female
  Weight: 58.9676 kg

DRUGS (5)
  1. FOSINOPRIL SODIUM [Suspect]
     Indication: HYPERTENSION
     Dosage: PO PRIOR TO ADMISSION
     Route: 048
  2. WELLBUTRIN [Concomitant]
  3. FOSAMAX [Concomitant]
  4. VERAPAMIL [Concomitant]
  5. FOSINOPRIL SODIUM [Concomitant]

REACTIONS (1)
  - ANGIOEDEMA [None]
